FAERS Safety Report 12313753 (Version 1)
Quarter: 2016Q2

REPORT INFORMATION
  Report Type: Spontaneous
  Country: US (occurrence: US)
  Receive Date: 20160428
  Receipt Date: 20160428
  Transmission Date: 20160815
  Serious: Yes (Other)
  Sender: FDA-Public Use
  Company Number: ADR-2015-01276

PATIENT
  Age: 21 Year
  Sex: Male

DRUGS (1)
  1. BACLOFEN. [Suspect]
     Active Substance: BACLOFEN
     Dosage: 249.6 MCG/DAY
     Route: 037

REACTIONS (5)
  - Pain in extremity [Recovered/Resolved]
  - Muscle spasticity [Recovered/Resolved]
  - Drug withdrawal syndrome [Recovered/Resolved]
  - Loss of control of legs [Recovered/Resolved]
  - Muscle contractions involuntary [Recovered/Resolved]

NARRATIVE: CASE EVENT DATE: 20150601
